FAERS Safety Report 21783798 (Version 10)
Quarter: 2024Q2

REPORT INFORMATION
  Report Type: Spontaneous
  Country: HR (occurrence: HR)
  Receive Date: 20221227
  Receipt Date: 20240509
  Transmission Date: 20240715
  Serious: Yes (Other)
  Sender: FDA-Public Use
  Company Number: HR-BRISTOL-MYERS SQUIBB COMPANY-2022-151110

PATIENT
  Age: 73 Year
  Sex: Male
  Weight: 105 kg

DRUGS (46)
  1. ROSUVASTATIN [Suspect]
     Active Substance: ROSUVASTATIN
     Indication: Product used for unknown indication
     Dosage: 20 MG
  2. ROSUVASTATIN [Suspect]
     Active Substance: ROSUVASTATIN
     Dosage: 10 MG
  3. ROSUVASTATIN [Suspect]
     Active Substance: ROSUVASTATIN
     Dosage: 20 MG
  4. ROSUVASTATIN [Suspect]
     Active Substance: ROSUVASTATIN
     Dosage: 10 MG
  5. RAMIPRIL [Suspect]
     Active Substance: RAMIPRIL
     Indication: Product used for unknown indication
     Dosage: 3 MG
  6. RAMIPRIL [Suspect]
     Active Substance: RAMIPRIL
     Dosage: 5 MG
  7. RAMIPRIL [Suspect]
     Active Substance: RAMIPRIL
     Dosage: 2.5 MG
  8. RAMIPRIL [Suspect]
     Active Substance: RAMIPRIL
     Dosage: 3 MG
  9. RAMIPRIL [Suspect]
     Active Substance: RAMIPRIL
     Dosage: 3 MG
  10. RAMIPRIL [Suspect]
     Active Substance: RAMIPRIL
     Dosage: 5 MG
  11. METOPROLOL [Suspect]
     Active Substance: METOPROLOL
     Indication: Product used for unknown indication
     Dosage: 50 MG
  12. METOPROLOL [Suspect]
     Active Substance: METOPROLOL
     Dosage: 25 MG
  13. METOPROLOL [Suspect]
     Active Substance: METOPROLOL
  14. METOPROLOL [Suspect]
     Active Substance: METOPROLOL
  15. DABIGATRAN [Suspect]
     Active Substance: DABIGATRAN
     Indication: Product used for unknown indication
     Dosage: 110 UNK
  16. DABIGATRAN [Suspect]
     Active Substance: DABIGATRAN
     Dosage: 110 MG, QD
  17. DABIGATRAN [Suspect]
     Active Substance: DABIGATRAN
     Dosage: 110 MG, BID
  18. CLOPIDOGREL BISULFATE [Suspect]
     Active Substance: CLOPIDOGREL BISULFATE
     Indication: Product used for unknown indication
     Dosage: 75 MG
     Route: 065
     Dates: start: 2016, end: 2016
  19. CLOPIDOGREL BISULFATE [Suspect]
     Active Substance: CLOPIDOGREL BISULFATE
     Dosage: 100 MG
     Dates: start: 2016
  20. CLOPIDOGREL BISULFATE [Suspect]
     Active Substance: CLOPIDOGREL BISULFATE
     Dosage: 200 MG
     Dates: start: 2016
  21. AMIODARONE HYDROCHLORIDE [Suspect]
     Active Substance: AMIODARONE HYDROCHLORIDE
     Indication: Product used for unknown indication
     Dosage: 200 MG
  22. AMIODARONE HYDROCHLORIDE [Suspect]
     Active Substance: AMIODARONE HYDROCHLORIDE
     Dosage: 100 MG
  23. AMIODARONE HYDROCHLORIDE [Suspect]
     Active Substance: AMIODARONE HYDROCHLORIDE
     Dosage: 200 MG
  24. AMIODARONE HYDROCHLORIDE [Suspect]
     Active Substance: AMIODARONE HYDROCHLORIDE
     Dosage: 100 MG
  25. AMIODARONE HYDROCHLORIDE [Suspect]
     Active Substance: AMIODARONE HYDROCHLORIDE
     Dosage: 200 MG
  26. AMIODARONE HYDROCHLORIDE [Suspect]
     Active Substance: AMIODARONE HYDROCHLORIDE
     Dosage: 100 MG
  27. MESALAMINE [Suspect]
     Active Substance: MESALAMINE
     Indication: Product used for unknown indication
     Dosage: 100 MG
     Dates: end: 2016
  28. MESALAMINE [Suspect]
     Active Substance: MESALAMINE
     Dosage: 100 MG
     Dates: start: 2016
  29. APIXABAN [Suspect]
     Active Substance: APIXABAN
     Indication: Product used for unknown indication
     Dosage: 5 MG, BID
  30. APIXABAN [Suspect]
     Active Substance: APIXABAN
     Dosage: 10 MG, QD
     Route: 048
  31. APIXABAN [Suspect]
     Active Substance: APIXABAN
     Dosage: 5 MG, QD
     Route: 048
  32. PANTOPRAZOLE [Suspect]
     Active Substance: PANTOPRAZOLE
     Indication: Product used for unknown indication
     Dosage: 40 MG
  33. PANTOPRAZOLE [Suspect]
     Active Substance: PANTOPRAZOLE
  34. PANTOPRAZOLE [Suspect]
     Active Substance: PANTOPRAZOLE
     Dosage: 40 MG
  35. WARFARIN SODIUM [Suspect]
     Active Substance: WARFARIN SODIUM
     Indication: Product used for unknown indication
     Dosage: 20 MG
  36. WARFARIN SODIUM [Suspect]
     Active Substance: WARFARIN SODIUM
     Dosage: 20 MG
  37. WARFARIN SODIUM [Suspect]
     Active Substance: WARFARIN SODIUM
     Dosage: 20 MG
  38. METOPROLOL TARTRATE [Suspect]
     Active Substance: METOPROLOL TARTRATE
     Indication: Product used for unknown indication
     Dosage: 50 MG
  39. METOPROLOL TARTRATE [Suspect]
     Active Substance: METOPROLOL TARTRATE
     Dosage: 25 MG
  40. ASPIRIN [Suspect]
     Active Substance: ASPIRIN
     Indication: Product used for unknown indication
     Dosage: 100 MG
     Dates: end: 2016
  41. ASPIRIN [Suspect]
     Active Substance: ASPIRIN
     Dosage: 100 MG
     Dates: end: 2016
  42. ASPIRIN [Suspect]
     Active Substance: ASPIRIN
     Dosage: 100 MG
     Route: 065
     Dates: end: 2016
  43. PANTOPRAZOLE SODIUM [Suspect]
     Active Substance: PANTOPRAZOLE SODIUM
     Indication: Product used for unknown indication
     Dosage: 40 MG
  44. DALTEPARIN [Suspect]
     Active Substance: DALTEPARIN
     Indication: Product used for unknown indication
     Dosage: 5000 IU
  45. DALTEPARIN [Suspect]
     Active Substance: DALTEPARIN
     Dosage: UNK, QD, 0.5 - DAILY
  46. DALTEPARIN [Suspect]
     Active Substance: DALTEPARIN
     Dosage: UNK, BID

REACTIONS (4)
  - Atrial fibrillation [Unknown]
  - Anastomotic infection [Unknown]
  - Adenocarcinoma of colon [Unknown]
  - Increased tendency to bruise [Unknown]

NARRATIVE: CASE EVENT DATE: 20160101
